FAERS Safety Report 24964534 (Version 2)
Quarter: 2025Q3

REPORT INFORMATION
  Report Type: Spontaneous
  Country: EU (occurrence: EU)
  Receive Date: 20250213
  Receipt Date: 20250810
  Transmission Date: 20251020
  Serious: Yes (Disabling)
  Sender: ALEXION PHARMACEUTICALS
  Company Number: EU-AstraZeneca-CH-00802895A

PATIENT
  Age: 70 Year
  Sex: Female

DRUGS (1)
  1. SAPHNELO [Suspect]
     Active Substance: ANIFROLUMAB-FNIA
     Indication: Cutaneous lupus erythematosus
     Route: 065

REACTIONS (2)
  - Back pain [Recovered/Resolved]
  - Off label use [Unknown]
